FAERS Safety Report 18009737 (Version 2)
Quarter: 2020Q3

REPORT INFORMATION
  Report Type: Spontaneous
  Country: US (occurrence: US)
  Receive Date: 20200710
  Receipt Date: 20200916
  Transmission Date: 20201103
  Serious: Yes (Other)
  Sender: FDA-Public Use
  Company Number: US-GILEAD-2020-0480313

PATIENT
  Sex: Female

DRUGS (1)
  1. VIREAD [Suspect]
     Active Substance: TENOFOVIR DISOPROXIL FUMARATE
     Indication: HIV INFECTION
     Dosage: UNK
     Route: 048
     Dates: start: 200111, end: 201903

REACTIONS (6)
  - Renal injury [Unknown]
  - Skeletal injury [Unknown]
  - Osteonecrosis [Unknown]
  - Bone disorder [Not Recovered/Not Resolved]
  - Bone density decreased [Unknown]
  - Fracture [Unknown]

NARRATIVE: CASE EVENT DATE: 2012
